FAERS Safety Report 17464675 (Version 2)
Quarter: 2020Q2

REPORT INFORMATION
  Report Type: Spontaneous
  Country: US (occurrence: US)
  Receive Date: 20200226
  Receipt Date: 20200424
  Transmission Date: 20200713
  Serious: Yes (Death, Other)
  Sender: FDA-Public Use
  Company Number: US-INCYTE CORPORATION-2020IN001737

PATIENT

DRUGS (2)
  1. JAKAFI [Suspect]
     Active Substance: RUXOLITINIB
     Dosage: UNK
     Route: 065
  2. JAKAFI [Suspect]
     Active Substance: RUXOLITINIB
     Indication: MYELOFIBROSIS
     Dosage: 10 MILLIGRAM, BID
     Route: 048
     Dates: start: 20200204

REACTIONS (2)
  - Death [Fatal]
  - Fatigue [Unknown]
